FAERS Safety Report 23151014 (Version 2)
Quarter: 2023Q4

REPORT INFORMATION
  Report Type: Spontaneous
  Country: US (occurrence: US)
  Receive Date: 20231106
  Receipt Date: 20231218
  Transmission Date: 20240109
  Serious: No
  Sender: FDA-Public Use
  Company Number: US-BAUSCHBL-2023BNL010945

PATIENT
  Sex: Female

DRUGS (4)
  1. MINERALS\VITAMINS [Suspect]
     Active Substance: MINERALS\VITAMINS
     Indication: Glaucoma
     Dosage: HAS BEEN USING PRESERVISION FOR AROUND 5-7 YEARS
     Route: 065
     Dates: start: 202308
  2. MINERALS\VITAMINS [Suspect]
     Active Substance: MINERALS\VITAMINS
     Indication: Cataract
  3. LATANOPROST [Suspect]
     Active Substance: LATANOPROST
     Indication: Glaucoma
     Dosage: LATANOPROST (BAUSCH + LOMB)  FOR GLAUCOMA FOR AROUND 5-7 YEARS.
     Route: 047
  4. TIMOLOL [Concomitant]
     Active Substance: TIMOLOL
     Indication: Glaucoma
     Dosage: TIMOLOL (SANDOZ) FOR GLAUCOMA FOR AROUND 5-7 YEARS

REACTIONS (6)
  - Inappropriate schedule of product administration [Unknown]
  - Product physical issue [Unknown]
  - Product physical consistency issue [Unknown]
  - Poor quality product administered [Unknown]
  - Product quality issue [Unknown]
  - No adverse event [Unknown]

NARRATIVE: CASE EVENT DATE: 20230101
